FAERS Safety Report 13549381 (Version 3)
Quarter: 2017Q3

REPORT INFORMATION
  Report Type: Spontaneous
  Country: US (occurrence: US)
  Receive Date: 20170516
  Receipt Date: 20170904
  Transmission Date: 20171127
  Serious: No
  Sender: FDA-Public Use
  Company Number: US-TEVA-767645ACC

PATIENT
  Sex: Male

DRUGS (10)
  1. CENTRUM [Concomitant]
     Active Substance: VITAMINS
  2. FISH OIL [Concomitant]
     Active Substance: FISH OIL
  3. VESICARE [Concomitant]
     Active Substance: SOLIFENACIN SUCCINATE
  4. SUPER B 50 [Concomitant]
  5. MAGNESIUM [Concomitant]
     Active Substance: MAGNESIUM
  6. COPAXONE [Suspect]
     Active Substance: GLATIRAMER ACETATE
     Dosage: PEN
     Route: 058
     Dates: start: 20150318
  7. CLONAZEPAM. [Concomitant]
     Active Substance: CLONAZEPAM
  8. FINASTERIDE. [Concomitant]
     Active Substance: FINASTERIDE
  9. VITAMIN D3 [Concomitant]
     Active Substance: CHOLECALCIFEROL
  10. COPAXONE [Suspect]
     Active Substance: GLATIRAMER ACETATE
     Indication: MULTIPLE SCLEROSIS
     Route: 058
     Dates: start: 20150226

REACTIONS (1)
  - Fall [Unknown]
